FAERS Safety Report 4427657-3 (Version None)
Quarter: 2004Q3

REPORT INFORMATION
  Report Type: 
  Country: None (occurrence: None)
  Receive Date: 20040812
  Receipt Date: 20040728
  Transmission Date: 20050211
  Serious: Yes (Hospitalization)
  Sender: FDA-Public Use
  Company Number: 2004-BP-05180NB

PATIENT
  Age: 80 Year
  Sex: Male

DRUGS (9)
  1. MICARDIS [Suspect]
     Indication: RENOVASCULAR HYPERTENSION
     Dosage: 20 MG (20 MG), PO
     Route: 048
     Dates: start: 20040205, end: 20040517
  2. NORVASC [Concomitant]
  3. NITOROL R (KA) [Concomitant]
  4. BUFFERIN [Concomitant]
  5. SELBEX (TEPRENONE) [Concomitant]
  6. ANPLAG (SARPOGRELATE HYDROCHLORIDE) (TA) [Concomitant]
  7. PLETAAL (CILOSTAZOL) (TA) [Concomitant]
  8. PROSTANDIN (ALPROSTADIL) (AMV) [Concomitant]
  9. ALDACTONE [Concomitant]

REACTIONS (3)
  - CONDITION AGGRAVATED [None]
  - NEPHROGENIC ANAEMIA [None]
  - RENAL IMPAIRMENT [None]
